FAERS Safety Report 8553573-1 (Version None)
Quarter: 2012Q3

REPORT INFORMATION
  Report Type: 
  Country: None (occurrence: None)
  Receive Date: 20120731
  Receipt Date: 20120726
  Transmission Date: 20120928
  Serious: No
  Sender: FDA-Public Use
  Company Number: US-PFIZER INC-2012171708

PATIENT
  Sex: Female

DRUGS (5)
  1. XALATAN [Suspect]
     Dosage: UNK
     Dates: start: 20060101
  2. CELECOXIB [Suspect]
     Dosage: UNK
     Dates: start: 20100101
  3. SIMVASTATIN [Suspect]
     Indication: BLOOD CHOLESTEROL INCREASED
     Dosage: UNK
  4. ZOCOR [Suspect]
     Dosage: UNK
  5. XALATAN [Concomitant]
     Dosage: UNK
     Route: 047

REACTIONS (2)
  - OROPHARYNGEAL PAIN [None]
  - NAUSEA [None]
